FAERS Safety Report 20211513 (Version 4)
Quarter: 2022Q3

REPORT INFORMATION
  Report Type: Report from Study
  Country: AR (occurrence: AR)
  Receive Date: 20211221
  Receipt Date: 20220719
  Transmission Date: 20221027
  Serious: Yes (Hospitalization, Disabling, Other)
  Sender: FDA-Public Use
  Company Number: AR-NOVARTISPH-NVSC2021AR290533

PATIENT
  Sex: Female

DRUGS (2)
  1. GILENYA [Suspect]
     Active Substance: FINGOLIMOD HYDROCHLORIDE
     Indication: Multiple sclerosis
     Dosage: 0.5 MG, QD
     Route: 048
     Dates: start: 20180301
  2. ACETAMINOPHEN [Suspect]
     Active Substance: ACETAMINOPHEN
     Indication: Product used for unknown indication
     Dosage: UNK
     Route: 065

REACTIONS (11)
  - COVID-19 pneumonia [Recovered/Resolved]
  - Dysphagia [Unknown]
  - Pyrexia [Recovered/Resolved]
  - Blindness [Not Recovered/Not Resolved]
  - Dehydration [Unknown]
  - Headache [Unknown]
  - Allergic cough [Recovered/Resolved]
  - Demyelination [Unknown]
  - Thrombosis [Unknown]
  - Amaurosis [Not Recovered/Not Resolved]
  - COVID-19 [Recovered/Resolved]

NARRATIVE: CASE EVENT DATE: 20210101
